FAERS Safety Report 13036369 (Version 1)
Quarter: 2016Q4

REPORT INFORMATION
  Report Type: Spontaneous
  Country: GB (occurrence: GB)
  Receive Date: 20161216
  Receipt Date: 20161216
  Transmission Date: 20170207
  Serious: Yes (Other)
  Sender: FDA-Public Use
  Company Number: GB-TEVA-719713ACC

PATIENT
  Age: 72 Year
  Sex: Male
  Weight: 91 kg

DRUGS (7)
  1. ATORVASTATIN [Concomitant]
     Active Substance: ATORVASTATIN
     Dosage: 1 DOSAGE FORMS DAILY;
     Dates: start: 20150221
  2. DOXAZOSIN [Concomitant]
     Active Substance: DOXAZOSIN\DOXAZOSIN MESYLATE
     Dosage: 2 DOSAGE FORMS DAILY;
     Dates: start: 20140212
  3. FELODIPINE. [Concomitant]
     Active Substance: FELODIPINE
     Dosage: 2 DOSAGE FORMS DAILY; ONE IN MORNING AND ONE AT NIGHT.
     Dates: start: 20140212
  4. LISINOPRIL. [Suspect]
     Active Substance: LISINOPRIL
     Dates: start: 201611
  5. INFLUENZA VIRUS [Concomitant]
     Active Substance: INFLUENZA VIRUS VACCINE
     Dates: start: 20161001, end: 20161001
  6. LACTULOSE. [Concomitant]
     Active Substance: LACTULOSE
     Dosage: 20 ML DAILY;
     Dates: start: 20140212
  7. NATRILIX [Concomitant]
     Active Substance: INDAPAMIDE
     Dosage: 1 DOSAGE FORMS DAILY; EACH MORNING.
     Dates: start: 20140226, end: 20161107

REACTIONS (2)
  - Testicular pain [Recovered/Resolved]
  - Testicular swelling [Recovered/Resolved]

NARRATIVE: CASE EVENT DATE: 20161107
